FAERS Safety Report 10673036 (Version 1)
Quarter: 2014Q4

REPORT INFORMATION
  Report Type: Spontaneous
  Country: FR (occurrence: FR)
  Receive Date: 20141223
  Receipt Date: 20141223
  Transmission Date: 20150529
  Serious: Yes (Hospitalization)
  Sender: FDA-Public Use
  Company Number: FR-009507513-1412FRA007530

PATIENT
  Age: 63 Year
  Sex: Male

DRUGS (9)
  1. RAMIPRIL. [Concomitant]
     Active Substance: RAMIPRIL
     Dosage: 10X 0.5, QAM
  2. INEGY [Suspect]
     Active Substance: EZETIMIBE\SIMVASTATIN
     Dosage: STRENGTH 6/20
  3. DEPAKINE [Concomitant]
     Active Substance: VALPROATE SODIUM
     Dosage: 500 UNITS UNKNOWN, BID
  4. LOXEN [Concomitant]
     Active Substance: NICARDIPINE HYDROCHLORIDE
     Dosage: UNK
  5. RUBOZINC [Concomitant]
  6. TRIFLUCAN [Suspect]
     Active Substance: FLUCONAZOLE
     Dosage: UNK
     Dates: start: 201404
  7. KARDEGIC [Concomitant]
     Active Substance: ASPIRIN LYSINE
     Dosage: 160 MG, QD
  8. CANCIDAS [Suspect]
     Active Substance: CASPOFUNGIN ACETATE
     Dosage: UNK
     Dates: start: 201404, end: 2014
  9. ESIDREX [Concomitant]
     Active Substance: HYDROCHLOROTHIAZIDE
     Dosage: 25 MG, QAM

REACTIONS (3)
  - Cell death [Unknown]
  - Alcohol poisoning [Unknown]
  - Cholestasis [Unknown]

NARRATIVE: CASE EVENT DATE: 2014
